FAERS Safety Report 6977978-5 (Version None)
Quarter: 2010Q3

REPORT INFORMATION
  Report Type: 
  Country: None (occurrence: None)
  Receive Date: 20100913
  Receipt Date: 20100831
  Transmission Date: 20110219
  Serious: No
  Sender: FDA-Public Use
  Company Number: PHHY2010US58096

PATIENT
  Sex: Female

DRUGS (3)
  1. TASIGNA [Suspect]
     Dosage: 400 MG, BID
     Route: 048
     Dates: start: 20100510
  2. SPRYCEL [Concomitant]
     Dosage: UNK
     Dates: start: 20091130, end: 20100524
  3. CALCIUM WITH VITAMIN D [Concomitant]

REACTIONS (1)
  - HYPERCALCAEMIA [None]
